FAERS Safety Report 22608549 (Version 1)
Quarter: 2023Q2

REPORT INFORMATION
  Report Type: Spontaneous
  Country: JP (occurrence: JP)
  Receive Date: 20230616
  Receipt Date: 20230616
  Transmission Date: 20230722
  Serious: Yes (Death, Hospitalization)
  Sender: FDA-Public Use
  Company Number: JP-JNJFOC-20230637189

PATIENT
  Age: 87 Year
  Sex: Male

DRUGS (3)
  1. TREMFYA [Suspect]
     Active Substance: GUSELKUMAB
     Indication: Psoriasis
     Dosage: EVERY 4 TO 8 WEEKS?INJECTION
     Route: 058
     Dates: end: 20220304
  2. TREMFYA [Suspect]
     Active Substance: GUSELKUMAB
     Dosage: EVERY 4 TO 8 WEEKS?INJECTION
     Route: 058
     Dates: start: 20230224, end: 20230224
  3. TREMFYA [Suspect]
     Active Substance: GUSELKUMAB

REACTIONS (2)
  - Gastric cancer [Fatal]
  - Cerebral infarction [Unknown]

NARRATIVE: CASE EVENT DATE: 20230306
